FAERS Safety Report 7584007-1 (Version None)
Quarter: 2011Q2

REPORT INFORMATION
  Report Type: 
  Country: None (occurrence: None)
  Receive Date: 20110628
  Receipt Date: 20110628
  Transmission Date: 20111010
  Serious: Yes (Hospitalization, Disabling, Other)
  Sender: FDA-Public Use
  Company Number: None

PATIENT
  Sex: Female
  Weight: 41.7309 kg

DRUGS (2)
  1. LEVAQUIN [Suspect]
     Indication: SINUSITIS
     Dosage: 1 TABLET EVERY 24 HRS ORAL
     Route: 048
     Dates: start: 20101208, end: 20101217
  2. LEVAQUIN [Suspect]
     Indication: BRONCHITIS
     Dosage: 1 TABLET EVERY 24 HRS ORAL
     Route: 048
     Dates: start: 20101208, end: 20101217

REACTIONS (14)
  - DISORIENTATION [None]
  - PAIN IN EXTREMITY [None]
  - HEADACHE [None]
  - ARTHRALGIA [None]
  - CANDIDIASIS [None]
  - CHEST PAIN [None]
  - DIZZINESS [None]
  - MUSCULAR WEAKNESS [None]
  - PLANTAR FASCIITIS [None]
  - TREMOR [None]
  - THINKING ABNORMAL [None]
  - GROIN PAIN [None]
  - TEMPOROMANDIBULAR JOINT SYNDROME [None]
  - DIARRHOEA [None]
